FAERS Safety Report 21031693 (Version 1)
Quarter: 2022Q3

REPORT INFORMATION
  Report Type: Spontaneous
  Country: US (occurrence: None)
  Receive Date: 20220701
  Receipt Date: 20220701
  Transmission Date: 20221027
  Serious: No
  Sender: FDA-Public Use
  Company Number: US-ROCHE-2928680

PATIENT
  Sex: Female
  Weight: 50.394 kg

DRUGS (12)
  1. ACTEMRA [Suspect]
     Active Substance: TOCILIZUMAB
     Indication: Rheumatoid arthritis
     Dosage: ONCE A MONTH OR EVERY 28-30 DAYS.
     Route: 042
     Dates: end: 202108
  2. ACTEMRA [Suspect]
     Active Substance: TOCILIZUMAB
     Indication: Rheumatoid arthritis
  3. PLAQUENIL [Concomitant]
     Active Substance: HYDROXYCHLOROQUINE SULFATE
     Route: 048
  4. PREDNISONE [Concomitant]
     Active Substance: PREDNISONE
     Route: 048
     Dates: start: 202109
  5. PREDNISONE [Concomitant]
     Active Substance: PREDNISONE
     Route: 048
     Dates: start: 202109
  6. DULOXETINE [Concomitant]
     Active Substance: DULOXETINE
     Route: 048
  7. LUBIPROSTONE [Concomitant]
     Active Substance: LUBIPROSTONE
     Indication: Irritable bowel syndrome
     Dosage: ONE CAPSULE TWICE DAILY ONE IN THE MORNING AND ONE IN AFTERNOON
     Route: 048
     Dates: start: 2021
  8. VITAMIN D3 [Concomitant]
     Active Substance: CHOLECALCIFEROL
     Route: 048
  9. HYDROCODONE 5/325 MG (UNK INGREDIENTS) [Concomitant]
     Indication: Pain
     Dosage: ONE EVERY 6 HOURS AS NEEDED
     Route: 048
  10. TRAZODONE [Concomitant]
     Active Substance: TRAZODONE HYDROCHLORIDE
     Indication: Poor quality sleep
     Route: 048
     Dates: start: 2021
  11. PROLIA [Concomitant]
     Active Substance: DENOSUMAB
  12. CYMBALTA [Concomitant]
     Active Substance: DULOXETINE HYDROCHLORIDE

REACTIONS (3)
  - Off label use [Unknown]
  - Poor quality sleep [Recovering/Resolving]
  - Irritable bowel syndrome [Unknown]
